FAERS Safety Report 10749336 (Version 1)
Quarter: 2015Q1

REPORT INFORMATION
  Report Type: Spontaneous
  Country: AU (occurrence: AU)
  Receive Date: 20150129
  Receipt Date: 20150129
  Transmission Date: 20150721
  Serious: Yes (Hospitalization, Other)
  Sender: FDA-Public Use
  Company Number: AU-BRISTOL-MYERS SQUIBB COMPANY-BMS-2015-003474

PATIENT
  Sex: Male

DRUGS (1)
  1. ELIQUIS [Suspect]
     Active Substance: APIXABAN
     Indication: COAGULOPATHY
     Dosage: UNK UNK, BID
     Route: 065
     Dates: start: 201406

REACTIONS (3)
  - Hypercalcaemia [Unknown]
  - Lung neoplasm malignant [Unknown]
  - Haemoptysis [Unknown]
